FAERS Safety Report 4952816-0 (Version None)
Quarter: 2006Q1

REPORT INFORMATION
  Report Type: 
  Country: None (occurrence: None)
  Receive Date: 20060324
  Receipt Date: 20060310
  Transmission Date: 20060701
  Serious: Yes (Other)
  Sender: FDA-Public Use
  Company Number: HQWYE304313MAR06

PATIENT
  Sex: Male

DRUGS (6)
  1. ENBREL [Suspect]
     Indication: RHEUMATOID ARTHRITIS
     Route: 058
     Dates: start: 20050913, end: 20051108
  2. PREDONINE [Suspect]
     Indication: DRUG USE FOR UNKNOWN INDICATION
     Dosage: UNKNOWN
     Route: 048
  3. ALENDRONATE SODIUM [Concomitant]
     Dosage: UNKNOWN
     Route: 048
  4. ZOPICLONE [Concomitant]
     Dosage: UNKNOWN
     Route: 048
  5. VOLTAREN [Concomitant]
     Dosage: UNKNOWN
     Route: 054
  6. LORNOXICAM [Concomitant]

REACTIONS (1)
  - PELVIC FRACTURE [None]
